FAERS Safety Report 16739966 (Version 2)
Quarter: 2019Q3

REPORT INFORMATION
  Report Type: Report from Study
  Country: IN (occurrence: IN)
  Receive Date: 20190826
  Receipt Date: 20190909
  Transmission Date: 20191005
  Serious: Yes (Hospitalization)
  Sender: FDA-Public Use
  Company Number: IN-ROCHE-2381365

PATIENT
  Age: 69 Year
  Sex: Female
  Weight: 43 kg

DRUGS (15)
  1. FORACORT [Concomitant]
     Active Substance: BUDESONIDE\FORMOTEROL FUMARATE
     Dosage: TO RELIEVE SYMPTOMS SUCH AS WHEEZING, SHORTNESS OF BREATH, CHEST TIGHTNESS, BREATHING DIFFICULTIES,
     Route: 055
     Dates: start: 20190813
  2. FLUCONAZOLE. [Concomitant]
     Active Substance: FLUCONAZOLE
     Dosage: IT IS USE TO PREVENT AN TREAT INFECTIONS CAUSE?BY FUNGI AN YESTS. IT ACTS BY STOPPING THE GROWTH AN
     Route: 048
     Dates: start: 20190813, end: 20190813
  3. TRAMADOL/ACETAMINOPHEN [Concomitant]
     Active Substance: ACETAMINOPHEN\TRAMADOL
     Route: 048
     Dates: start: 20190813
  4. EPALRESTAT [Concomitant]
     Active Substance: EPALRESTAT
     Route: 065
     Dates: start: 20190813
  5. DEXTROMETHORPHAN [Concomitant]
     Active Substance: DEXTROMETHORPHAN
     Indication: COUGH
     Dosage: SYRUP AT 2 TSP
     Route: 048
     Dates: start: 20190813
  6. FOLIC ACID. [Concomitant]
     Active Substance: FOLIC ACID
     Dosage: TO TREAT OR PREVENT LOW FOLATE LEVELS,
     Route: 048
     Dates: start: 20190813
  7. AMLODIPINE [Concomitant]
     Active Substance: AMLODIPINE BESYLATE
     Route: 065
  8. LOSARTAN. [Concomitant]
     Active Substance: LOSARTAN
     Indication: HYPERTENSION
     Route: 048
     Dates: start: 20190813
  9. TRASTUZUMAB EMTANSINE [Suspect]
     Active Substance: ADO-TRASTUZUMAB EMTANSINE
     Indication: HER-2 POSITIVE BREAST CANCER
     Dosage: LOADING DOSE 3.6MG/KG- 1ST CYCLE UPTO 90 MINUTES  (4:20 TO 5:50 PM)?SUBSEQUENT CYCLES 3.6MG/KG- 1ST
     Route: 042
     Dates: start: 20180518, end: 20190813
  10. MEGESTROL [Concomitant]
     Active Substance: MEGESTROL
     Dosage: USE TO TREAT?OR PREVENT VITAMIN DEFICIENCY DUE TO POOR DIET, CERTAIN ILLNESS
     Route: 048
     Dates: start: 20190813
  11. ESOMEPRAZOLE. [Concomitant]
     Active Substance: ESOMEPRAZOLE MAGNESIUM
     Route: 048
     Dates: start: 20190813
  12. METHYLCOBALAMINE [Concomitant]
     Route: 065
     Dates: start: 20190813
  13. OTHER DRUGS FOR CONSTIPATION [Concomitant]
     Indication: CONSTIPATION
     Route: 065
     Dates: start: 20190813
  14. ACEBROPHYLLINE [Concomitant]
     Route: 048
     Dates: start: 20190813
  15. URSODEOXYCHOLIC ACID [Concomitant]
     Active Substance: URSODIOL
     Route: 048
     Dates: start: 20190813

REACTIONS (2)
  - Blood creatinine increased [Recovered/Resolved]
  - Hypercalcaemia [Recovered/Resolved]

NARRATIVE: CASE EVENT DATE: 20190813
